FAERS Safety Report 5939330-0 (Version None)
Quarter: 2008Q4

REPORT INFORMATION
  Report Type: 
  Country: None (occurrence: None)
  Receive Date: 20081103
  Receipt Date: 20081021
  Transmission Date: 20090506
  Serious: Yes (Hospitalization)
  Sender: FDA-Public Use
  Company Number: US-ELI_LILLY_AND_COMPANY-US200810003609

PATIENT
  Age: 78 Year
  Sex: Female

DRUGS (2)
  1. CYMBALTA [Suspect]
     Indication: ANXIETY
     Dosage: 30 MG, UNK
     Dates: end: 20080101
  2. METOPROLOL TARTRATE [Concomitant]
     Indication: BLOOD PRESSURE

REACTIONS (5)
  - ACUTE PSYCHOSIS [None]
  - CIRCULATORY COLLAPSE [None]
  - RECTAL HAEMORRHAGE [None]
  - SEROTONIN SYNDROME [None]
  - VAGINAL HAEMORRHAGE [None]
